FAERS Safety Report 9343779 (Version 1)
Quarter: 2013Q2

REPORT INFORMATION
  Report Type: Spontaneous
  Country: GB (occurrence: GB)
  Receive Date: 20130612
  Receipt Date: 20130612
  Transmission Date: 20140414
  Serious: Yes (Other)
  Sender: FDA-Public Use
  Company Number: GB-ACCORD-017948

PATIENT
  Age: 87 Year
  Sex: Female
  Weight: 120.94 kg

DRUGS (8)
  1. AMLODIPINE [Suspect]
     Indication: PRODUCT USED FOR UNKNOWN INDICATION
     Dates: start: 20130430
  2. PARACETAMOL [Concomitant]
     Dates: start: 20130415, end: 20130427
  3. FENBID [Concomitant]
     Dates: start: 20130415, end: 20130429
  4. ASPIRIN [Concomitant]
     Dates: start: 20130220
  5. FLUCLOXACILLIN [Concomitant]
     Dates: start: 20130405, end: 20130412
  6. BISOPROLOL [Concomitant]
     Dates: start: 20130220
  7. PROCHLORPERAZINE [Concomitant]
     Dates: start: 20120624
  8. LEVOTHYROXINE [Concomitant]
     Dates: start: 20130220

REACTIONS (1)
  - Dyspepsia [Recovered/Resolved]
